FAERS Safety Report 20079001 (Version 1)
Quarter: 2021Q4

REPORT INFORMATION
  Report Type: Spontaneous
  Country: GB (occurrence: GB)
  Receive Date: 20211117
  Receipt Date: 20211117
  Transmission Date: 20220303
  Serious: Yes (Other)
  Sender: FDA-Public Use
  Company Number: GB-ABBVIE-21K-167-4163629-00

PATIENT

DRUGS (3)
  1. VALPROATE SODIUM [Suspect]
     Active Substance: VALPROATE SODIUM
     Indication: Product used for unknown indication
     Route: 065
     Dates: start: 2016
  2. VALPROATE SODIUM [Suspect]
     Active Substance: VALPROATE SODIUM
     Route: 065
     Dates: start: 2017
  3. VALPROATE SODIUM [Suspect]
     Active Substance: VALPROATE SODIUM
     Dosage: DOSE CHANGED
     Route: 065
     Dates: start: 2018

REACTIONS (12)
  - Myocardial infarction [Recovered/Resolved]
  - Myocardial infarction [Recovered/Resolved]
  - Myocardial infarction [Unknown]
  - Renal impairment [Recovered/Resolved]
  - Renal impairment [Recovered/Resolved]
  - Renal impairment [Unknown]
  - Chemical poisoning [Recovered/Resolved]
  - Overdose [Recovered/Resolved]
  - Overdose [Recovered/Resolved]
  - Toxicity to various agents [Recovered/Resolved]
  - Toxicity to various agents [Unknown]
  - Overdose [Unknown]

NARRATIVE: CASE EVENT DATE: 20161124
